FAERS Safety Report 7351340-8 (Version None)
Quarter: 2011Q1

REPORT INFORMATION
  Report Type: 
  Country: None (occurrence: None)
  Receive Date: 20110314
  Receipt Date: 20110301
  Transmission Date: 20110831
  Serious: Yes (Other)
  Sender: FDA-Public Use
  Company Number: PHFR2011GB01787

PATIENT
  Age: 28 Year
  Sex: Female
  Weight: 63 kg

DRUGS (3)
  1. AMPICILLIN SODIUM/SULBACTAM SODIUM [Concomitant]
     Dosage: UNK
     Dates: start: 20110224
  2. DESOGESTREL AND ETHINYL ESTRADIOL [Concomitant]
     Dosage: UNK
     Dates: start: 20101018, end: 20110110
  3. CARBAMAZEPINE [Suspect]
     Dosage: 200 MG
     Dates: start: 20110224

REACTIONS (6)
  - NEUTROPENIA [None]
  - BLOOD DISORDER [None]
  - MALAISE [None]
  - RASH ERYTHEMATOUS [None]
  - LYMPHADENOPATHY [None]
  - RASH [None]
